FAERS Safety Report 18580400 (Version 1)
Quarter: 2020Q4

REPORT INFORMATION
  Report Type: Spontaneous
  Country: US (occurrence: US)
  Receive Date: 20201204
  Receipt Date: 20201204
  Transmission Date: 20210114
  Serious: No
  Sender: FDA-Public Use
  Company Number: US-PFIZER INC-2020473056

PATIENT
  Sex: Female

DRUGS (1)
  1. XELJANZ [Suspect]
     Active Substance: TOFACITINIB CITRATE
     Indication: ARTHRITIS
     Dosage: UNK
     Dates: start: 2020, end: 202011

REACTIONS (6)
  - Gait disturbance [Unknown]
  - Arthritis [Unknown]
  - Pain [Not Recovered/Not Resolved]
  - Abdominal pain upper [Unknown]
  - Dyspnoea [Unknown]
  - Middle insomnia [Unknown]
